FAERS Safety Report 8516811-7 (Version None)
Quarter: 2012Q3

REPORT INFORMATION
  Report Type: 
  Country: None (occurrence: None)
  Receive Date: 20120718
  Receipt Date: 20120711
  Transmission Date: 20120928
  Serious: Yes (Death, Hospitalization)
  Sender: FDA-Public Use
  Company Number: IT-CELGENEUS-083-21880-11072018

PATIENT
  Sex: Female

DRUGS (13)
  1. ASPIRIN [Concomitant]
     Indication: THROMBOSIS PROPHYLAXIS
     Dosage: 100 MILLIGRAM
     Route: 065
     Dates: start: 20110426
  2. ADALAT [Concomitant]
     Indication: HYPERTENSION
     Route: 065
     Dates: start: 20110426
  3. REVLIMID [Suspect]
     Indication: DIFFUSE LARGE B-CELL LYMPHOMA
     Dosage: 20 MILLIGRAM
     Route: 048
     Dates: start: 20110622
  4. TACHIDOL [Concomitant]
     Indication: PROPHYLAXIS
     Route: 065
     Dates: start: 20110614
  5. OXYCODONE AND ACETAMINOPHEN [Concomitant]
     Indication: PROPHYLAXIS
     Dosage: 30 MILLIGRAM
     Route: 065
     Dates: start: 20110531, end: 20110614
  6. OMEPRAZOLE [Concomitant]
     Indication: PROPHYLAXIS
     Dosage: 40 MILLIGRAM
     Route: 065
     Dates: start: 20110426
  7. SYMBICORT [Concomitant]
     Indication: GRAFT VERSUS HOST DISEASE IN LUNG
     Route: 065
     Dates: start: 20110426
  8. RIOPAN [Concomitant]
     Indication: PROPHYLAXIS
     Route: 065
     Dates: start: 20110512
  9. RITUXIMAB [Concomitant]
     Indication: DIFFUSE LARGE B-CELL LYMPHOMA
     Route: 065
     Dates: start: 20110411
  10. REVLIMID [Suspect]
     Indication: NON-HODGKIN'S LYMPHOMA
     Dosage: 20 MILLIGRAM
     Route: 048
     Dates: start: 20110427
  11. BACTRIM [Concomitant]
     Indication: ANTIBIOTIC PROPHYLAXIS
     Route: 065
     Dates: start: 20110426
  12. INSULIN [Concomitant]
     Indication: DIABETES MELLITUS
     Route: 065
     Dates: start: 20110426, end: 20110614
  13. LYRICA [Concomitant]
     Indication: PAIN
     Route: 065
     Dates: start: 20110502, end: 20110614

REACTIONS (3)
  - PYREXIA [None]
  - METABOLIC ACIDOSIS [None]
  - GRAFT VERSUS HOST DISEASE IN LUNG [None]
